FAERS Safety Report 17392486 (Version 1)
Quarter: 2020Q3

REPORT INFORMATION
  Report Type: Other
  Country: AT (occurrence: AT)
  Receive Date: 20200207
  Receipt Date: 20200207
  Transmission Date: 20201105
  Serious: Yes (Death, Other)
  Sender: FDA-Public Use
  Company Number: AT-CELLTRION INC.-2019AT022761

PATIENT

DRUGS (12)
  1. CYTARABINE. [Suspect]
     Active Substance: CYTARABINE
     Indication: DOUBLE HIT LYMPHOMA
     Dosage: R?DHAP
     Route: 065
     Dates: start: 20190604, end: 20190608
  2. VINCRISTINE [Suspect]
     Active Substance: VINCRISTINE
     Indication: DOUBLE HIT LYMPHOMA
     Dosage: DA?EPOCH?R
     Route: 065
     Dates: start: 20190228, end: 20190429
  3. CYCLOPHOSPHAMIDE. [Suspect]
     Active Substance: CYCLOPHOSPHAMIDE
     Indication: DOUBLE HIT LYMPHOMA
     Dosage: DA?EPOCH?R
     Route: 065
     Dates: start: 20190228, end: 20190429
  4. ETOPOSID [Suspect]
     Active Substance: ETOPOSIDE
     Indication: DOUBLE HIT LYMPHOMA
     Dosage: DA?EPOCH?R
     Route: 065
     Dates: start: 20190228, end: 20190429
  5. POLATUZUMAB VEDOTIN. [Suspect]
     Active Substance: POLATUZUMAB VEDOTIN
     Indication: DIFFUSE LARGE B-CELL LYMPHOMA REFRACTORY
     Dosage: UNK (STOP DATE: 16?SEP?2019)
     Route: 065
  6. DOXORUBICIN [Suspect]
     Active Substance: DOXORUBICIN
     Indication: DOUBLE HIT LYMPHOMA
     Dosage: DA?EPOCH?R
     Route: 065
     Dates: start: 20190228, end: 20190429
  7. RITUXIMAB (UNKNOWN) [Suspect]
     Active Substance: RITUXIMAB
     Indication: DOUBLE HIT LYMPHOMA
     Dosage: DA?EPOCH?R, R?DHAP
     Route: 065
     Dates: start: 20190228, end: 20190608
  8. RITUXIMAB (UNKNOWN) [Suspect]
     Active Substance: RITUXIMAB
     Indication: DIFFUSE LARGE B-CELL LYMPHOMA REFRACTORY
     Dosage: UNK (STOP DATE: 16?SEP?2019)
     Route: 065
  9. DEXAMETHASONE. [Suspect]
     Active Substance: DEXAMETHASONE
     Indication: DOUBLE HIT LYMPHOMA
     Dosage: R?DHAP
     Route: 065
     Dates: start: 20190604, end: 20190608
  10. PREDNISONE. [Suspect]
     Active Substance: PREDNISONE
     Indication: DOUBLE HIT LYMPHOMA
     Dosage: DA?EPOCH?R
     Route: 065
     Dates: start: 20190228, end: 20190429
  11. CISPLATIN. [Suspect]
     Active Substance: CISPLATIN
     Indication: DOUBLE HIT LYMPHOMA
     Dosage: R?DHAP
     Route: 065
     Dates: start: 20190604, end: 20190608
  12. BENDAMUSTINE [Suspect]
     Active Substance: BENDAMUSTINE
     Indication: DIFFUSE LARGE B-CELL LYMPHOMA REFRACTORY
     Dosage: UNK (STOP DATE: 16?SEP?2019)
     Route: 065

REACTIONS (10)
  - Endocarditis staphylococcal [Fatal]
  - Anaemia [Fatal]
  - Herpes simplex [Fatal]
  - Sepsis [Unknown]
  - Diffuse large B-cell lymphoma [Fatal]
  - Acute kidney injury [Unknown]
  - Febrile neutropenia [Unknown]
  - Hypomagnesaemia [Fatal]
  - Death [Fatal]
  - Thrombocytopenia [Fatal]

NARRATIVE: CASE EVENT DATE: 20191001
